FAERS Safety Report 4521627-2 (Version None)
Quarter: 2004Q4

REPORT INFORMATION
  Report Type: 
  Country: None (occurrence: None)
  Receive Date: 20041208
  Receipt Date: 20041208
  Transmission Date: 20050328
  Serious: Yes (Hospitalization)
  Sender: FDA-Public Use
  Company Number: None

PATIENT
  Age: 27 Year
  Sex: Male
  Weight: 70.7611 kg

DRUGS (1)
  1. DOSTINEX [Suspect]
     Indication: BLOOD PROLACTIN INCREASED
     Dosage: 1.5 MG   TWICE A WEEK   ORAL
     Route: 048
     Dates: start: 20030703, end: 20040413

REACTIONS (2)
  - EOSINOPHILIC PNEUMONIA [None]
  - LIVER FUNCTION TEST ABNORMAL [None]
